FAERS Safety Report 19956667 (Version 3)
Quarter: 2022Q1

REPORT INFORMATION
  Report Type: Spontaneous
  Country: US (occurrence: US)
  Receive Date: 20211014
  Receipt Date: 20220128
  Transmission Date: 20220423
  Serious: No
  Sender: FDA-Public Use
  Company Number: US-BLUEPRINT MEDICINES CORPORATION-SP-US-2021-001861

PATIENT
  Sex: Male

DRUGS (3)
  1. AYVAKIT [Suspect]
     Active Substance: AVAPRITINIB
     Indication: Gastrointestinal stromal tumour
     Route: 048
     Dates: start: 20201230
  2. AYVAKIT [Suspect]
     Active Substance: AVAPRITINIB
     Route: 048
     Dates: start: 20201230
  3. AYVAKIT [Suspect]
     Active Substance: AVAPRITINIB
     Route: 048
     Dates: start: 20201230

REACTIONS (8)
  - Feeling cold [Unknown]
  - Initial insomnia [Unknown]
  - Fatigue [Unknown]
  - Periorbital oedema [Unknown]
  - Haemoglobin decreased [Unknown]
  - Toothache [Unknown]
  - Tooth extraction [Unknown]
  - Memory impairment [Unknown]
